FAERS Safety Report 18248045 (Version 1)
Quarter: 2020Q3

REPORT INFORMATION
  Report Type: Spontaneous
  Country: US (occurrence: US)
  Receive Date: 20200909
  Receipt Date: 20200909
  Transmission Date: 20201103
  Serious: No
  Sender: FDA-Public Use
  Company Number: US-PERRIGO-20US008412

PATIENT
  Age: 67 Year
  Sex: Female
  Weight: 128.8 kg

DRUGS (2)
  1. ALBUTEROL SULFATE. [Suspect]
     Active Substance: ALBUTEROL SULFATE
     Dosage: UNKNOWN, SINGLE
     Route: 048
     Dates: start: 202006, end: 202006
  2. ALBUTEROL SULFATE. [Suspect]
     Active Substance: ALBUTEROL SULFATE
     Indication: DYSPNOEA
     Dosage: UNKNOWN, EVERY 4 HOURS PRN
     Route: 055
     Dates: start: 202005

REACTIONS (4)
  - Device delivery system issue [Unknown]
  - Accidental exposure to product [Recovered/Resolved]
  - Cough [Recovered/Resolved]
  - Incorrect dose administered [Unknown]

NARRATIVE: CASE EVENT DATE: 202005
